FAERS Safety Report 11198735 (Version 3)
Quarter: 2015Q3

REPORT INFORMATION
  Report Type: Report from Study
  Country: MX (occurrence: MX)
  Receive Date: 20150618
  Receipt Date: 20150714
  Transmission Date: 20151125
  Serious: Yes (Other)
  Sender: FDA-Public Use
  Company Number: MX-ROCHE-1594164

PATIENT
  Age: 63 Year
  Sex: Female
  Weight: 67.2 kg

DRUGS (10)
  1. METHOTREXATE [Concomitant]
     Active Substance: METHOTREXATE
     Indication: RHEUMATOID ARTHRITIS
     Route: 048
     Dates: start: 20100920
  2. DICLOFENAC [Concomitant]
     Active Substance: DICLOFENAC
     Indication: RHEUMATOID ARTHRITIS
     Route: 048
     Dates: start: 201008
  3. AMBROXOL HYDROCHLORIDE\LORATADINE. [Concomitant]
     Active Substance: AMBROXOL HYDROCHLORIDE\LORATADINE
     Indication: PHARYNGITIS
     Route: 048
     Dates: start: 20131214, end: 20131219
  4. TOCILIZUMAB [Suspect]
     Active Substance: TOCILIZUMAB
     Indication: RHEUMATOID ARTHRITIS
     Dosage: LAST DOSE PRIOR TO SAE ON 15/APR/2015
     Route: 042
     Dates: start: 20130123
  5. FOLIC ACID. [Concomitant]
     Active Substance: FOLIC ACID
     Indication: RHEUMATOID ARTHRITIS
     Route: 048
     Dates: start: 20100920
  6. BENZYLPENICILLIN [Concomitant]
     Active Substance: PENICILLIN G
     Indication: PHARYNGITIS
     Dosage: 800000 UNITS
     Route: 048
     Dates: start: 20131214, end: 20131219
  7. OMEPRAZOLE. [Concomitant]
     Active Substance: OMEPRAZOLE
     Indication: DYSPEPSIA
     Route: 048
     Dates: start: 20121021
  8. OMEGA 3 [Concomitant]
     Active Substance: OMEGA-3 FATTY ACIDS
     Dosage: 1 CAPSULE
     Route: 048
     Dates: start: 20130105
  9. CHLORTRIMETON [Concomitant]
     Active Substance: CHLORPHENIRAMINE MALEATE
     Indication: URTICARIA
     Dosage: PILL
     Route: 048
     Dates: start: 20130510, end: 20130513
  10. PARACETAMOL [Concomitant]
     Active Substance: ACETAMINOPHEN
     Indication: HEADACHE
     Dosage: AS NEEDED
     Route: 048
     Dates: start: 20121021

REACTIONS (1)
  - Angina unstable [Recovered/Resolved with Sequelae]

NARRATIVE: CASE EVENT DATE: 20150430
